FAERS Safety Report 11538039 (Version 2)
Quarter: 2017Q3

REPORT INFORMATION
  Report Type: Spontaneous
  Country: MX (occurrence: MX)
  Receive Date: 20150922
  Receipt Date: 20170714
  Transmission Date: 20171127
  Serious: Yes (Other)
  Sender: FDA-Public Use
  Company Number: MX-ELI_LILLY_AND_COMPANY-MX201509004246

PATIENT
  Age: 45 Year
  Sex: Male

DRUGS (3)
  1. ZYPREXA [Suspect]
     Active Substance: OLANZAPINE
     Indication: EMOTIONAL DISTRESS
     Dosage: UNK, UNKNOWN
     Route: 065
     Dates: start: 2013
  2. ZYPREXA [Suspect]
     Active Substance: OLANZAPINE
     Indication: EMOTIONAL DISTRESS
     Dosage: UNK UNK, UNKNOWN
     Route: 065
     Dates: start: 2013
  3. ZYPREXA [Suspect]
     Active Substance: OLANZAPINE
     Dosage: UNK UNK, UNKNOWN
     Route: 065
     Dates: start: 201611

REACTIONS (5)
  - Wrong technique in product usage process [Unknown]
  - Aggression [Unknown]
  - Mood altered [Unknown]
  - Irritability [Unknown]
  - Hyperacusis [Unknown]

NARRATIVE: CASE EVENT DATE: 201704
